FAERS Safety Report 8309780-6 (Version None)
Quarter: 2012Q2

REPORT INFORMATION
  Report Type: 
  Country: None (occurrence: None)
  Receive Date: 20120425
  Receipt Date: 20120418
  Transmission Date: 20120825
  Serious: Yes (Other)
  Sender: FDA-Public Use
  Company Number: PHEH2007US01095

PATIENT
  Sex: Female

DRUGS (15)
  1. NITROGLYCERIN [Concomitant]
     Dosage: 0.2 MG, UNK
  2. COLACE [Concomitant]
     Dosage: 100 MG, TID
  3. SENOKOT [Concomitant]
  4. AROMASIN [Concomitant]
     Dosage: 25 MG, UNK
  5. TOPROL-XL [Concomitant]
     Dosage: 50 MG, BID
  6. ZOMETA [Suspect]
     Indication: RESORPTION BONE INCREASED
     Dates: start: 20020101, end: 20050101
  7. TYLENOL (CAPLET) [Concomitant]
  8. KEFLEX [Concomitant]
     Dosage: 500 MG, UNK
  9. MEGESTROL ACETATE [Concomitant]
  10. PERCOCET [Concomitant]
  11. AREDIA [Suspect]
     Indication: RESORPTION BONE INCREASED
     Dosage: UNK, UNK
     Dates: start: 19990101, end: 20020101
  12. ASPIRIN [Concomitant]
     Dosage: 81 MG, QD
  13. MEGACE [Concomitant]
  14. OXYCONTIN [Concomitant]
  15. PLAVIX [Concomitant]
     Dosage: 75 MG, QD

REACTIONS (14)
  - GINGIVITIS [None]
  - PLEURAL EFFUSION [None]
  - OSTEONECROSIS OF JAW [None]
  - INJURY [None]
  - TACHYCARDIA [None]
  - ANHEDONIA [None]
  - EMOTIONAL DISTRESS [None]
  - PERIODONTAL DISEASE [None]
  - GINGIVAL BLEEDING [None]
  - CHEST PAIN [None]
  - PAIN [None]
  - DECREASED INTEREST [None]
  - METASTASES TO BONE [None]
  - BUNDLE BRANCH BLOCK LEFT [None]
